FAERS Safety Report 7461456-3 (Version None)
Quarter: 2011Q2

REPORT INFORMATION
  Report Type: 
  Country: None (occurrence: None)
  Receive Date: 20110506
  Receipt Date: 20110427
  Transmission Date: 20111010
  Serious: No
  Sender: FDA-Public Use
  Company Number: US-PFIZER INC-2011095641

PATIENT
  Sex: Male

DRUGS (2)
  1. ALAVERT [Suspect]
     Indication: HYPERSENSITIVITY
     Dosage: 2 DF, UNK
     Route: 065
     Dates: start: 20110401, end: 20110401
  2. ALAVERT [Suspect]
     Dosage: 1 DF, UNK
     Route: 065
     Dates: start: 20110427

REACTIONS (2)
  - OVERDOSE [None]
  - DRUG EFFECT DECREASED [None]
